FAERS Safety Report 9460161 (Version 1)
Quarter: 2013Q3

REPORT INFORMATION
  Report Type: Spontaneous
  Country: PR (occurrence: PR)
  Receive Date: 20130815
  Receipt Date: 20130815
  Transmission Date: 20140515
  Serious: No
  Sender: FDA-Public Use
  Company Number: PR-BAXTER-2013BAX031079

PATIENT
  Sex: Female

DRUGS (1)
  1. CLINIMIX 4.25/5 SULFITE-FREE [Suspect]
     Indication: OCCUPATIONAL EXPOSURE TO PRODUCT
     Route: 061
     Dates: start: 20130805, end: 20130805

REACTIONS (2)
  - Occupational exposure to product [Unknown]
  - No adverse event [Recovered/Resolved]
